FAERS Safety Report 23978554 (Version 1)
Quarter: 2024Q2

REPORT INFORMATION
  Report Type: Spontaneous
  Country: US (occurrence: US)
  Receive Date: 20240614
  Receipt Date: 20240614
  Transmission Date: 20240716
  Serious: Yes (Other)
  Sender: FDA-Public Use
  Company Number: US-SAREPTA THERAPEUTICS INC.-SRP2024-004744

PATIENT
  Age: 15 Year
  Sex: Male
  Weight: 40.1 kg

DRUGS (1)
  1. EXONDYS 51 [Suspect]
     Active Substance: ETEPLIRSEN
     Indication: Duchenne muscular dystrophy
     Dosage: 1300 MILLIGRAM, WEEKLY
     Route: 042
     Dates: start: 201503

REACTIONS (1)
  - Staphylococcal sepsis [Unknown]

NARRATIVE: CASE EVENT DATE: 20230401
